FAERS Safety Report 17998817 (Version 1)
Quarter: 2020Q3

REPORT INFORMATION
  Report Type: Spontaneous
  Country: US (occurrence: US)
  Receive Date: 20200708
  Receipt Date: 20200708
  Transmission Date: 20201103
  Serious: No
  Sender: FDA-Public Use
  Company Number: None

PATIENT
  Sex: Female

DRUGS (1)
  1. CLOZAPINE. [Suspect]
     Active Substance: CLOZAPINE
     Route: 048
     Dates: start: 20190528, end: 20190609

REACTIONS (6)
  - C-reactive protein increased [None]
  - Drug ineffective [None]
  - Electrocardiogram ST segment abnormal [None]
  - Bundle branch block left [None]
  - Atrioventricular block first degree [None]
  - Heart rate increased [None]

NARRATIVE: CASE EVENT DATE: 20190528
